FAERS Safety Report 6065142-6 (Version None)
Quarter: 2009Q1

REPORT INFORMATION
  Report Type: 
  Country: None (occurrence: None)
  Receive Date: 20090204
  Receipt Date: 20090126
  Transmission Date: 20090719
  Serious: Yes (Other)
  Sender: FDA-Public Use
  Company Number: DE-AMGEN-UK302228

PATIENT
  Age: 69 Year
  Sex: Male
  Weight: 72 kg

DRUGS (4)
  1. VECTIBIX [Suspect]
     Indication: COLORECTAL CANCER
     Route: 042
     Dates: start: 20080516, end: 20080822
  2. OMEPRAZOLE [Concomitant]
     Route: 048
  3. SELENIUM [Concomitant]
  4. ZINC [Concomitant]

REACTIONS (6)
  - BLOOD CREATININE INCREASED [None]
  - HAEMATURIA [None]
  - LUNG DISORDER [None]
  - PAIN [None]
  - PNEUMONITIS [None]
  - PROTEINURIA [None]
